FAERS Safety Report 23204316 (Version 1)
Quarter: 2023Q4

REPORT INFORMATION
  Report Type: Report from Study
  Country: EG (occurrence: EG)
  Receive Date: 20231120
  Receipt Date: 20231120
  Transmission Date: 20240110
  Serious: Yes (Other)
  Sender: FDA-Public Use
  Company Number: EG-002147023-NVSC2023EG238934

PATIENT
  Sex: Male

DRUGS (5)
  1. GILENYA [Suspect]
     Active Substance: FINGOLIMOD HYDROCHLORIDE
     Indication: Multiple sclerosis
     Dosage: 1 DOSAGE FORM, QD (STARTED ONE YEAR AGO) (ONE CAPSULE OF GILENYA 0.5MG PER DAY)
     Route: 048
     Dates: start: 2022
  2. VITAMIN D NOS [Concomitant]
     Active Substance: VITAMIN D NOS
     Indication: Nutritional supplementation
     Dosage: UNK (10.000 CURRENTLY (STARTED SECOND 6 MONTHS OF TAKING GILENYA) (CHANGED FROM 600.000 ONE INJECTIO
     Route: 065
  3. BONE CARE [Concomitant]
     Active Substance: ATRACTYLODES LANCEA ROOT
     Indication: Nutritional supplementation
     Dosage: 2 DOSAGE FORM, QD (TWO DOSES PER DAY AS PER HIS WORDS) (^CA^ AS PER HIS WORDS)
     Route: 065
     Dates: start: 202208
  4. OMEGA 3 [Concomitant]
     Active Substance: CAPSAICIN
     Indication: Nutritional supplementation
     Dosage: 1 DOSAGE FORM, QD (ONE DOSE PER DAY AS PER HIS WORDS)
     Route: 065
     Dates: start: 202208
  5. BENFOTIAMINE\CYANOCOBALAMIN\PYRIDOXINE HYDROCHLORIDE [Concomitant]
     Active Substance: BENFOTIAMINE\CYANOCOBALAMIN\PYRIDOXINE HYDROCHLORIDE
     Indication: Nutritional supplementation
     Dosage: 1 DOSAGE FORM, QD (SECOND 6 MONTHS OF USING GILENYA) (ONE TAB PER DAY)
     Route: 065

REACTIONS (4)
  - Multiple sclerosis [Unknown]
  - Vitamin D decreased [Recovered/Resolved]
  - White blood cell count abnormal [Not Recovered/Not Resolved]
  - Hepatic enzyme abnormal [Recovering/Resolving]

NARRATIVE: CASE EVENT DATE: 20220101
